FAERS Safety Report 17414487 (Version 5)
Quarter: 2020Q3

REPORT INFORMATION
  Report Type: Spontaneous
  Country: US (occurrence: US)
  Receive Date: 20200213
  Receipt Date: 20200716
  Transmission Date: 20201102
  Serious: No
  Sender: FDA-Public Use
  Company Number: US-PFIZER INC-2020065143

PATIENT
  Age: 57 Year
  Sex: Female

DRUGS (1)
  1. IBRANCE [Suspect]
     Active Substance: PALBOCICLIB
     Dosage: 125 MG, CYCLIC (ONCE A DAY FOR 21 DAYS, THEN 7 DAYS OFF)
     Route: 048

REACTIONS (12)
  - Product dose omission issue [Unknown]
  - Eye infection [Unknown]
  - Nasal congestion [Unknown]
  - Somnolence [Unknown]
  - Urticaria [Recovered/Resolved]
  - Epistaxis [Not Recovered/Not Resolved]
  - Lacrimation increased [Unknown]
  - Eye swelling [Unknown]
  - Illness [Unknown]
  - Pruritus [Recovered/Resolved]
  - Eye allergy [Recovering/Resolving]
  - Fatigue [Unknown]
